FAERS Safety Report 7909349-9 (Version None)
Quarter: 2011Q4

REPORT INFORMATION
  Report Type: 
  Country: None (occurrence: None)
  Receive Date: 20111111
  Receipt Date: 20111108
  Transmission Date: 20120403
  Serious: Yes (Other)
  Sender: FDA-Public Use
  Company Number: US-PFIZER INC-2011143857

PATIENT
  Sex: Female

DRUGS (2)
  1. CHANTIX [Suspect]
     Indication: SMOKING CESSATION THERAPY
     Dosage: STARTER PACK AND CONTINUING PACK, UNK
     Dates: start: 20090201, end: 20090501
  2. SERTRALINE [Concomitant]
     Indication: DEPRESSION
     Dosage: UNK
     Dates: start: 20090101, end: 20090101

REACTIONS (2)
  - SUICIDAL IDEATION [None]
  - DEPRESSION [None]
